FAERS Safety Report 24300975 (Version 1)
Quarter: 2024Q3

REPORT INFORMATION
  Report Type: Spontaneous
  Country: GB (occurrence: GB)
  Receive Date: 20240910
  Receipt Date: 20240910
  Transmission Date: 20241017
  Serious: Yes (Hospitalization, Disabling, Other)
  Sender: AUROBINDO
  Company Number: GB-MHRA-MED-202408301014088180-PJHYT

PATIENT
  Age: 77 Year
  Sex: Female

DRUGS (2)
  1. FUROSEMIDE [Suspect]
     Active Substance: FUROSEMIDE
     Indication: Oedema
     Dosage: 40 MILLIGRAM
     Route: 065
     Dates: start: 20240812
  2. GENTAMICIN [Suspect]
     Active Substance: GENTAMICIN
     Indication: Adverse drug reaction
     Dosage: 260 MILLIGRAM
     Route: 065
     Dates: start: 20240812, end: 20240813

REACTIONS (1)
  - Deafness [Not Recovered/Not Resolved]
